FAERS Safety Report 6221933-X (Version None)
Quarter: 2009Q2

REPORT INFORMATION
  Report Type: 
  Country: None (occurrence: None)
  Receive Date: 20090609
  Receipt Date: 20090609
  Transmission Date: 20091009
  Serious: Yes (Hospitalization)
  Sender: FDA-Public Use
  Company Number: None

PATIENT
  Age: 61 Year
  Sex: Male

DRUGS (2)
  1. MELATONIN [Suspect]
     Indication: SLEEP DISORDER
     Dosage: 1 TAB HS PO
     Route: 048
     Dates: start: 20090512, end: 20090603
  2. LOVASTATIN [Suspect]
     Dates: end: 20090605

REACTIONS (1)
  - ANGIOEDEMA [None]
